FAERS Safety Report 9499056 (Version 2)
Quarter: 2013Q3

REPORT INFORMATION
  Report Type: Spontaneous
  Country: US (occurrence: US)
  Receive Date: 20130904
  Receipt Date: 20130904
  Transmission Date: 20140515
  Serious: Yes (Death, Hospitalization, Other)
  Sender: FDA-Public Use
  Company Number: US-GILEAD-2013-0079292

PATIENT
  Age: 24 Year
  Sex: Male

DRUGS (6)
  1. ATRIPLA [Suspect]
     Indication: HIV INFECTION
     Dosage: UNK
     Dates: start: 201207, end: 2012
  2. STRIBILD [Suspect]
     Indication: HIV INFECTION
     Dosage: UNK
     Dates: start: 2012
  3. ALDACTONE                          /00006201/ [Concomitant]
     Dosage: 25 MG, UNK
     Route: 048
  4. COREG [Concomitant]
     Dosage: 12.5 MG, UNK
     Route: 048
  5. LISINOPRIL [Concomitant]
     Dosage: 10 MG, UNK
     Route: 048
  6. LASIX                              /00032601/ [Concomitant]
     Dosage: 40 MG, UNK
     Route: 048

REACTIONS (4)
  - Cardiac failure [Fatal]
  - Arrhythmia [Fatal]
  - Lactic acidosis [Recovered/Resolved]
  - Lactic acidosis [Recovered/Resolved]
